FAERS Safety Report 20854021 (Version 3)
Quarter: 2022Q3

REPORT INFORMATION
  Report Type: Spontaneous
  Country: IT (occurrence: None)
  Receive Date: 20220520
  Receipt Date: 20220721
  Transmission Date: 20221027
  Serious: Yes (Hospitalization, Other)
  Sender: FDA-Public Use
  Company Number: IT-ROCHE-3098243

PATIENT
  Age: 7 Year
  Sex: Male
  Weight: 30 kg

DRUGS (2)
  1. HEMLIBRA [Suspect]
     Active Substance: EMICIZUMAB-KXWH
     Indication: Haemophilia
     Route: 065
     Dates: end: 202203
  2. HEMLIBRA [Suspect]
     Active Substance: EMICIZUMAB-KXWH
     Indication: Factor VIII deficiency
     Route: 058
     Dates: start: 20220311, end: 20220311

REACTIONS (7)
  - Loss of consciousness [Recovered/Resolved]
  - Transient ischaemic attack [Recovered/Resolved]
  - COVID-19 [Recovered/Resolved]
  - Mobility decreased [Recovering/Resolving]
  - Decreased eye contact [Recovering/Resolving]
  - Oxygen saturation abnormal [Recovering/Resolving]
  - Critical illness [Recovering/Resolving]

NARRATIVE: CASE EVENT DATE: 20220320
